FAERS Safety Report 18078338 (Version 1)
Quarter: 2020Q3

REPORT INFORMATION
  Report Type: Spontaneous
  Country: DE (occurrence: DE)
  Receive Date: 20200728
  Receipt Date: 20200728
  Transmission Date: 20201103
  Serious: No
  Sender: FDA-Public Use
  Company Number: DE-ALKEM LABORATORIES LIMITED-DE-ALKEM-2019-07104

PATIENT
  Sex: Female

DRUGS (10)
  1. TAZOBACTAM [Suspect]
     Active Substance: TAZOBACTAM
     Indication: HERPES ZOSTER
     Dosage: UNK
     Route: 065
  2. METOCLOPRAMIDE. [Suspect]
     Active Substance: METOCLOPRAMIDE
     Indication: HERPES ZOSTER
     Dosage: UNK
     Route: 065
  3. PIPERACILLIN. [Suspect]
     Active Substance: PIPERACILLIN SODIUM
     Indication: HERPES ZOSTER
     Dosage: UNK
     Route: 065
  4. DAUNORUBICIN [Suspect]
     Active Substance: DAUNORUBICIN
     Indication: ACUTE MYELOID LEUKAEMIA
     Dosage: UNK
     Route: 065
  5. CYTARABINE. [Suspect]
     Active Substance: CYTARABINE
     Indication: ACUTE MYELOID LEUKAEMIA
     Dosage: UNK
     Route: 065
  6. CEFUROXIME AXETIL. [Suspect]
     Active Substance: CEFUROXIME AXETIL
     Indication: HERPES ZOSTER
     Dosage: UNK
     Route: 065
  7. AMPHOTERICIN B. [Suspect]
     Active Substance: AMPHOTERICIN B
     Indication: HERPES ZOSTER
     Dosage: UNK
     Route: 065
  8. PARACETAMOL [Suspect]
     Active Substance: ACETAMINOPHEN
     Indication: PAIN
     Dosage: 1500 MILLIGRAM, QD
     Route: 065
  9. ACICLOVIR [Suspect]
     Active Substance: ACYCLOVIR
     Indication: HERPES ZOSTER
     Dosage: UNK
     Route: 065
  10. PARACETAMOL [Suspect]
     Active Substance: ACETAMINOPHEN
     Indication: HERPES ZOSTER
     Dosage: 2000 MILLIGRAM, QD
     Route: 065

REACTIONS (1)
  - Exposure during pregnancy [Unknown]
